FAERS Safety Report 6602663-9 (Version None)
Quarter: 2010Q1

REPORT INFORMATION
  Report Type: 
  Country: None (occurrence: None)
  Receive Date: 20100218
  Receipt Date: 20100203
  Transmission Date: 20100710
  Serious: Yes (Other)
  Sender: FDA-Public Use
  Company Number: 2009SP042603

PATIENT
  Age: 34 Year
  Sex: Female

DRUGS (2)
  1. NUVARING [Suspect]
     Indication: DRUG USE FOR UNKNOWN INDICATION
  2. TOPAMAX [Suspect]
     Indication: MIGRAINE

REACTIONS (3)
  - GLAUCOMA [None]
  - MIGRAINE [None]
  - VISUAL IMPAIRMENT [None]
